FAERS Safety Report 7345603 (Version 4)
Quarter: 2013Q4

REPORT INFORMATION
  Report Type: Spontaneous
  Country: US (occurrence: US)
  Receive Date: 20100406
  Receipt Date: 20131219
  Transmission Date: 20140711
  Serious: Yes (Hospitalization, Other)
  Sender: FDA-Public Use
  Company Number: US-BAYER-201018276NA

PATIENT
  Age: 31 Year
  Sex: Female
  Weight: 50.79 kg

DRUGS (6)
  1. YAZ [Suspect]
     Indication: ORAL CONTRACEPTION
     Dosage: UNK
     Route: 048
     Dates: start: 200708, end: 200905
  2. YASMIN [Suspect]
     Indication: ORAL CONTRACEPTION
     Dosage: UNK
     Route: 048
     Dates: start: 200601, end: 200705
  3. VITAMIN C [Concomitant]
     Dosage: UNK
     Dates: start: 2000
  4. IBUPROFEN [Concomitant]
     Dosage: UNK UNK, PRN
  5. NEXIUM [Concomitant]
  6. LEVSIN [Concomitant]

REACTIONS (3)
  - Gallbladder disorder [Recovered/Resolved]
  - Abdominal pain upper [Recovered/Resolved]
  - Biliary dyskinesia [Recovered/Resolved]
